FAERS Safety Report 24872952 (Version 1)
Quarter: 2025Q1

REPORT INFORMATION
  Report Type: Spontaneous
  Country: CN (occurrence: CN)
  Receive Date: 20250122
  Receipt Date: 20250122
  Transmission Date: 20250409
  Serious: Yes (Hospitalization)
  Sender: GLAND PHARMA LTD
  Company Number: CN-GLANDPHARMA-CN-2025GLNLIT00103

PATIENT
  Age: 56 Year
  Sex: Male

DRUGS (8)
  1. VORICONAZOLE [Suspect]
     Active Substance: VORICONAZOLE
     Indication: Aspergillus infection
     Route: 065
  2. VORICONAZOLE [Suspect]
     Active Substance: VORICONAZOLE
     Indication: Pneumocystis jirovecii infection
  3. FLUCONAZOLE [Suspect]
     Active Substance: FLUCONAZOLE
     Indication: Candida infection
     Route: 065
  4. PRALSETINIB [Concomitant]
     Active Substance: PRALSETINIB
     Route: 048
     Dates: start: 202207
  5. PRALSETINIB [Concomitant]
     Active Substance: PRALSETINIB
     Route: 065
     Dates: end: 202306
  6. SELPERCATINIB [Concomitant]
     Active Substance: SELPERCATINIB
     Route: 065
     Dates: start: 202310
  7. NIFEDIPINE [Concomitant]
     Active Substance: NIFEDIPINE
     Indication: Hypertension
     Route: 065
  8. AMPHOTERICIN B [Concomitant]
     Active Substance: AMPHOTERICIN B
     Indication: Product used for unknown indication
     Route: 065

REACTIONS (3)
  - Infection [Unknown]
  - Drug interaction [Unknown]
  - Product use in unapproved indication [Unknown]
